FAERS Safety Report 6517158-0 (Version None)
Quarter: 2009Q4

REPORT INFORMATION
  Report Type: 
  Country: None (occurrence: None)
  Receive Date: 20091223
  Receipt Date: 20091214
  Transmission Date: 20100525
  Serious: Yes (Death)
  Sender: FDA-Public Use
  Company Number: JP-ABBOTT-09P-087-0603811-00

PATIENT
  Age: 82 Year
  Sex: Male

DRUGS (3)
  1. LEUPLIN SR FOR INJECTION 11.25 MG [Suspect]
     Indication: PROSTATE CANCER STAGE II
     Route: 058
     Dates: start: 20080604, end: 20090218
  2. BUP-4 [Concomitant]
     Indication: POLLAKIURIA
     Route: 048
     Dates: end: 20090414
  3. PURSENNID [Concomitant]
     Indication: CONSTIPATION
     Route: 048
     Dates: start: 20090120, end: 20090417

REACTIONS (1)
  - GASTRIC CANCER [None]
